FAERS Safety Report 24635846 (Version 1)
Quarter: 2024Q4

REPORT INFORMATION
  Report Type: Spontaneous
  Country: CN (occurrence: CN)
  Receive Date: 20241119
  Receipt Date: 20241119
  Transmission Date: 20250115
  Serious: Yes (Hospitalization)
  Sender: Haleon PLC
  Company Number: CN-HALEON-2209610

PATIENT
  Age: 61 Year
  Sex: Male
  Weight: 50 kg

DRUGS (3)
  1. IBUPROFEN [Suspect]
     Active Substance: IBUPROFEN
     Indication: Enteritis
     Route: 048
     Dates: start: 20241101, end: 20241103
  2. IBUPROFEN [Suspect]
     Active Substance: IBUPROFEN
     Indication: Diarrhoea
  3. IBUPROFEN [Suspect]
     Active Substance: IBUPROFEN
     Indication: Back pain

REACTIONS (3)
  - Acute kidney injury [Recovering/Resolving]
  - Decreased appetite [Recovering/Resolving]
  - Asthenia [Recovering/Resolving]

NARRATIVE: CASE EVENT DATE: 20241108
